FAERS Safety Report 14091935 (Version 2)
Quarter: 2017Q4

REPORT INFORMATION
  Report Type: Spontaneous
  Country: US (occurrence: US)
  Receive Date: 20171016
  Receipt Date: 20171107
  Transmission Date: 20180321
  Serious: No
  Sender: FDA-Public Use
  Company Number: US-PFIZER INC-2017441518

PATIENT
  Sex: Female

DRUGS (8)
  1. RANITIDINE. [Concomitant]
     Active Substance: RANITIDINE
     Indication: GASTROOESOPHAGEAL REFLUX DISEASE
     Dosage: 150 MG, DAILY (150MG TABLET, ONE AT BEDTIME)
  2. PRIMIDONE. [Concomitant]
     Active Substance: PRIMIDONE
     Indication: ESSENTIAL TREMOR
     Dosage: 50 MG, UNK AT NIGHT
  3. XALATAN [Suspect]
     Active Substance: LATANOPROST
     Indication: GLAUCOMA
     Dosage: 2 GTT, DAILY (1 DROP EACH EYE AT NIGHT)
     Route: 047
  4. XALEASE [Suspect]
     Active Substance: LATANOPROST
     Dosage: UNK
  5. XALATAN [Suspect]
     Active Substance: LATANOPROST
     Dosage: 2 GTT, DAILY (1 DROP EACH EYE AT NIGHT)
     Route: 047
  6. ATORVASTATIN [Concomitant]
     Active Substance: ATORVASTATIN
     Indication: BLOOD CHOLESTEROL ABNORMAL
     Dosage: 20 MG, 1X/DAY
  7. OMEPRAZOLE. [Concomitant]
     Active Substance: OMEPRAZOLE
     Indication: GASTROOESOPHAGEAL REFLUX DISEASE
     Dosage: 20 MG, 1X/DAY
  8. ATENOLOL. [Concomitant]
     Active Substance: ATENOLOL
     Indication: ESSENTIAL TREMOR
     Dosage: 25 MG, DAILY

REACTIONS (2)
  - Product quality issue [Unknown]
  - Essential tremor [Not Recovered/Not Resolved]
